FAERS Safety Report 7967555-1 (Version None)
Quarter: 2011Q4

REPORT INFORMATION
  Report Type: 
  Country: None (occurrence: None)
  Receive Date: 20111209
  Receipt Date: 20111129
  Transmission Date: 20120403
  Serious: Yes (Hospitalization)
  Sender: FDA-Public Use
  Company Number: US-JNJFOC-20030601363

PATIENT
  Sex: Female
  Weight: 65.77 kg

DRUGS (12)
  1. FOLIC ACID [Concomitant]
  2. OXYBUTYNIN [Concomitant]
  3. INFLIXIMAB [Suspect]
     Indication: RHEUMATOID ARTHRITIS
     Route: 042
     Dates: start: 20010110
  4. PREMARIN [Concomitant]
  5. PREDNISONE TAB [Concomitant]
  6. SULINDAC [Concomitant]
  7. ASPIRIN [Concomitant]
  8. VITAMIN E [Concomitant]
  9. METHOTREXATE [Concomitant]
  10. FUROSEMIDE [Concomitant]
  11. AMITRIPTYLINE HCL [Concomitant]
  12. GLUCOPHAGE [Concomitant]

REACTIONS (1)
  - PNEUMONIA LEGIONELLA [None]
